FAERS Safety Report 16584008 (Version 1)
Quarter: 2019Q3

REPORT INFORMATION
  Report Type: Spontaneous
  Country: DE (occurrence: DE)
  Receive Date: 20190717
  Receipt Date: 20190717
  Transmission Date: 20191004
  Serious: Yes (Hospitalization)
  Sender: FDA-Public Use
  Company Number: DE-TEVA-2019-DE-1077982

PATIENT
  Age: 18 Year
  Sex: Female

DRUGS (4)
  1. EISEN [Concomitant]
     Dosage: NK MG, NK
  2. REMICADE [Suspect]
     Active Substance: INFLIXIMAB
     Dosage: NK MG, APPROX. EVERY 6-8 WEEKS FOR ABOUT 2 YEARS ALL
     Route: 065
  3. PANTOPRAZOL [Concomitant]
     Active Substance: PANTOPRAZOLE SODIUM
     Dosage: 20 MG, 1-0-0-0
  4. PREDNISOLON [Suspect]
     Active Substance: PREDNISOLONE
     Route: 065

REACTIONS (6)
  - Chills [Unknown]
  - Pyrexia [Unknown]
  - Nuchal rigidity [Unknown]
  - Headache [Unknown]
  - Dizziness [Unknown]
  - Vomiting [Unknown]
